FAERS Safety Report 9702153 (Version 3)
Quarter: 2014Q1

REPORT INFORMATION
  Report Type: Report from Study
  Country: ES (occurrence: ES)
  Receive Date: 20131121
  Receipt Date: 20140128
  Transmission Date: 20141002
  Serious: Yes (Other)
  Sender: FDA-Public Use
  Company Number: ES-MERCK-1311ESP006330

PATIENT
  Age: 51 Year
  Sex: Female
  Weight: 77 kg

DRUGS (6)
  1. RIBAVIRIN [Suspect]
     Indication: CHRONIC HEPATITIS C
     Dosage: 1200 MG DAILY
     Route: 048
     Dates: start: 20130913, end: 2013
  2. RIBAVIRIN [Suspect]
     Dosage: 1000 MG, DAILY
     Route: 048
     Dates: start: 20131011, end: 20131117
  3. VICTRELIS [Suspect]
     Indication: CHRONIC HEPATITIS C
     Dosage: 2400 MG DAILY
     Route: 048
     Dates: start: 20131012, end: 20131117
  4. PEGINTRON [Concomitant]
     Indication: CHRONIC HEPATITIS C
     Dosage: 100 MICROGRAM, QW
     Route: 058
     Dates: start: 20130913, end: 20131117
  5. SPIRONOLACTONE [Concomitant]
     Indication: PROPHYLAXIS
     Dosage: 100MG DAILY
     Route: 048
  6. PROPRANOLOL HYDROCHLORIDE [Concomitant]
     Indication: VARICES OESOPHAGEAL
     Dosage: 20MG DAILY
     Route: 048

REACTIONS (1)
  - Anaemia [Recovered/Resolved]
